FAERS Safety Report 5155091-X (Version None)
Quarter: 2006Q4

REPORT INFORMATION
  Report Type: 
  Country: None (occurrence: None)
  Receive Date: 20061121
  Receipt Date: 20061116
  Transmission Date: 20070319
  Serious: Yes (Other)
  Sender: FDA-Public Use
  Company Number: AU-GLAXOSMITHKLINE-B0447113A

PATIENT

DRUGS (1)
  1. AVANDIA [Suspect]

REACTIONS (2)
  - DYSPNOEA [None]
  - PULMONARY OEDEMA [None]
